FAERS Safety Report 5360390-2 (Version None)
Quarter: 2007Q2

REPORT INFORMATION
  Report Type: 
  Country: None (occurrence: None)
  Receive Date: 20070614
  Receipt Date: 20070605
  Transmission Date: 20071010
  Serious: Yes (Hospitalization)
  Sender: FDA-Public Use
  Company Number: 2007BI010525

PATIENT
  Age: 60 Year
  Sex: Male
  Weight: 94 kg

DRUGS (14)
  1. AVONEX [Suspect]
     Indication: MULTIPLE SCLEROSIS
     Dosage: 30 UG;QW;IM
     Route: 030
     Dates: start: 19961223, end: 20041111
  2. AVONEX [Suspect]
     Indication: MULTIPLE SCLEROSIS
     Dosage: 30 UG;QW;IM
     Route: 030
     Dates: start: 20060326, end: 20070301
  3. FUROSEMIDE [Concomitant]
  4. ZOLPIDEM [Concomitant]
  5. FENTANYL [Concomitant]
  6. LIPASE [Concomitant]
  7. OMEPRAZOLE [Concomitant]
  8. REGLAN [Concomitant]
  9. METOPROLOL SUCCINATE [Concomitant]
  10. FERROUS SULFATE [Concomitant]
  11. HYDROMORPHONE HCL [Concomitant]
  12. VANCOMYCIN [Concomitant]
  13. IMIPENEM [Concomitant]
  14. LINEZOLID [Concomitant]

REACTIONS (4)
  - FALL [None]
  - OEDEMA [None]
  - PANCREATITIS NECROTISING [None]
  - RETROPERITONEAL ABSCESS [None]
